FAERS Safety Report 15929961 (Version 1)
Quarter: 2019Q1

REPORT INFORMATION
  Report Type: Spontaneous
  Country: ZA (occurrence: ZA)
  Receive Date: 20190206
  Receipt Date: 20190206
  Transmission Date: 20190417
  Serious: Yes (Hospitalization)
  Sender: FDA-Public Use
  Company Number: ZA-NOVOPROD-644837

PATIENT
  Age: 51 Year
  Sex: Female

DRUGS (7)
  1. NEXOMIST [Concomitant]
     Active Substance: MOMETASONE FUROATE
  2. SYMBICORD [Concomitant]
     Active Substance: BUDESONIDE\FORMOTEROL
  3. MYLAN PANTOPRAZOLE [Concomitant]
     Active Substance: PANTOPRAZOLE SODIUM
  4. VAGIFEM [Suspect]
     Active Substance: ESTRADIOL
     Indication: HORMONE REPLACEMENT THERAPY
     Dosage: 10 ?G
     Route: 067
     Dates: start: 201810
  5. ZARTAN [Concomitant]
     Active Substance: LOSARTAN POTASSIUM
  6. CALCIFEROL                         /00107901/ [Concomitant]
     Active Substance: ERGOCALCIFEROL
  7. FEMOSTON [Concomitant]
     Active Substance: DYDROGESTERONE\ESTRADIOL

REACTIONS (2)
  - Synovectomy [Unknown]
  - Tenoplasty [Unknown]
